FAERS Safety Report 12186168 (Version 3)
Quarter: 2016Q2

REPORT INFORMATION
  Report Type: Spontaneous
  Country: BR (occurrence: BR)
  Receive Date: 20160317
  Receipt Date: 20160501
  Transmission Date: 20160815
  Serious: Yes (Hospitalization, Other)
  Sender: FDA-Public Use
  Company Number: BR-ROCHE-1727303

PATIENT
  Age: 9 Year
  Sex: Male
  Weight: 19.2 kg

DRUGS (3)
  1. PULMOZYME [Suspect]
     Active Substance: DORNASE ALFA
     Indication: CYSTIC FIBROSIS
     Dosage: 1.0 MG/ML
     Route: 065
     Dates: start: 201503
  2. VANNAIR [Concomitant]
     Active Substance: BUDESONIDE\FORMOTEROL FUMARATE DIHYDRATE
     Indication: CYSTIC FIBROSIS
     Route: 065
     Dates: start: 201602
  3. SALBUTAMOL [Concomitant]
     Active Substance: ALBUTEROL
     Indication: CYSTIC FIBROSIS
     Dosage: 30 MINUTES BEFORE USING PULMOZYME
     Route: 065
     Dates: start: 2015

REACTIONS (7)
  - Dyspnoea [Recovered/Resolved]
  - Lung infection pseudomonal [Recovered/Resolved]
  - Asthmatic crisis [Recovered/Resolved]
  - Infection [Unknown]
  - Respiratory distress [Recovered/Resolved]
  - Oxygen saturation decreased [Recovered/Resolved]
  - Drug ineffective [Unknown]

NARRATIVE: CASE EVENT DATE: 201604
